FAERS Safety Report 9278343 (Version 7)
Quarter: 2013Q4

REPORT INFORMATION
  Report Type: Report from Study
  Country: AR (occurrence: AR)
  Receive Date: 20130508
  Receipt Date: 20131031
  Transmission Date: 20140711
  Serious: Yes (Hospitalization)
  Sender: FDA-Public Use
  Company Number: AR-B.I. PHARMACEUTICALS,INC./RIDGEFIELD-2013-RU-00472BP

PATIENT
  Age: 73 Year
  Sex: Female
  Weight: 77.5 kg

DRUGS (3)
  1. TRIAL PROCEDURE [Suspect]
     Indication: TYPE 2 DIABETES MELLITUS
  2. BI 1356 [Suspect]
     Indication: TYPE 2 DIABETES MELLITUS
     Dates: start: 20110624, end: 20130428
  3. CEFADROXILO [Suspect]
     Indication: LIMB INJURY
     Dosage: 2 G
     Route: 048
     Dates: start: 20130405, end: 20130425

REACTIONS (3)
  - Acute pulmonary oedema [Recovered/Resolved]
  - Renal failure acute [Recovered/Resolved]
  - Hypertension [Not Recovered/Not Resolved]
